FAERS Safety Report 11191766 (Version 2)
Quarter: 2015Q2

REPORT INFORMATION
  Report Type: Spontaneous
  Country: GB (occurrence: None)
  Receive Date: 20150612
  Receipt Date: 20150626
  Transmission Date: 20150821
  Serious: No
  Sender: FDA-Public Use
  Company Number: GB-LHC-2015069

PATIENT
  Sex: Female

DRUGS (1)
  1. COMPRESSED MEDICAL OXYGEN (OXYGEN) (GAS FOR INHALATION) (VERUM) [Suspect]
     Active Substance: OXYGEN
     Indication: PRODUCT USED FOR UNKNOWN INDICATION
     Dosage: 2 1PM, INHALATION
     Route: 055

REACTIONS (2)
  - Oropharyngeal pain [None]
  - Nasal dryness [None]
